FAERS Safety Report 6915331-0 (Version None)
Quarter: 2010Q3

REPORT INFORMATION
  Report Type: 
  Country: None (occurrence: None)
  Receive Date: 20100806
  Receipt Date: 20100806
  Transmission Date: 20110219
  Serious: Yes (Other)
  Sender: FDA-Public Use
  Company Number: None

PATIENT
  Age: 63 Year
  Sex: Female
  Weight: 77.1115 kg

DRUGS (4)
  1. SAVELLA [Suspect]
     Indication: DEPRESSION
     Dosage: 100MG ONE A DAY PO
     Route: 048
     Dates: start: 20100302, end: 20100710
  2. SAVELLA [Suspect]
     Indication: FIBROMYALGIA
     Dosage: 100MG ONE A DAY PO
     Route: 048
     Dates: start: 20100302, end: 20100710
  3. DARVOCET [Concomitant]
  4. CYCLOBENZAPRINE [Concomitant]

REACTIONS (9)
  - AGITATION [None]
  - CONFUSIONAL STATE [None]
  - CRYING [None]
  - DECREASED INTEREST [None]
  - DISTURBANCE IN ATTENTION [None]
  - HOSTILITY [None]
  - IRRITABILITY [None]
  - MAJOR DEPRESSION [None]
  - PANIC DISORDER [None]
